FAERS Safety Report 21969613 (Version 1)
Quarter: 2023Q1

REPORT INFORMATION
  Report Type: Spontaneous
  Country: IT (occurrence: IT)
  Receive Date: 20230208
  Receipt Date: 20230208
  Transmission Date: 20230418
  Serious: Yes (Hospitalization)
  Sender: FDA-Public Use
  Company Number: None

PATIENT
  Age: 72 Year
  Sex: Female

DRUGS (3)
  1. ZINPLAVA [Suspect]
     Active Substance: BEZLOTOXUMAB
     Indication: Prophylaxis
     Dosage: 600 MG 1 F EV
     Route: 042
     Dates: start: 20230118
  2. BISOPROLOL FUMARATE [Concomitant]
     Active Substance: BISOPROLOL FUMARATE
     Indication: Hypertensive heart disease
     Dosage: 1.25 MG/DIE
     Route: 048
  3. CANRENOATE POTASSIUM [Concomitant]
     Active Substance: CANRENOATE POTASSIUM
     Indication: Portal hypertension
     Dosage: 100 MG/DIE
     Route: 048

REACTIONS (1)
  - Klebsiella sepsis [Not Recovered/Not Resolved]

NARRATIVE: CASE EVENT DATE: 20230119
